FAERS Safety Report 18665831 (Version 5)
Quarter: 2021Q4

REPORT INFORMATION
  Report Type: Spontaneous
  Country: JP (occurrence: JP)
  Receive Date: 20201226
  Receipt Date: 20211006
  Transmission Date: 20220303
  Serious: Yes (Death, Life-Threatening, Hospitalization, Other)
  Sender: FDA-Public Use
  Company Number: JP-UNITED THERAPEUTICS-UNT-2019-009223

PATIENT
  Age: 46 Year
  Sex: Female
  Weight: 42.2 kg

DRUGS (33)
  1. REMODULIN [Suspect]
     Active Substance: TREPROSTINIL
     Indication: Pulmonary arterial hypertension
     Dosage: UNK, CONTINUING
     Route: 058
     Dates: start: 20190518
  2. REMODULIN [Suspect]
     Active Substance: TREPROSTINIL
     Dosage: 0.0041 ?G/KG, CONTINUING
     Route: 058
     Dates: start: 201905
  3. REMODULIN [Suspect]
     Active Substance: TREPROSTINIL
     Dosage: 0.0128 ?G/KG, CONTINUING
     Route: 058
     Dates: start: 2019
  4. REMODULIN [Suspect]
     Active Substance: TREPROSTINIL
     Dosage: 0.0247 ?G/KG, CONTINUING
     Route: 058
     Dates: start: 2019
  5. REMODULIN [Suspect]
     Active Substance: TREPROSTINIL
     Dosage: 0.025 ?G/KG, CONTINUING
     Route: 058
     Dates: start: 2019
  6. REMODULIN [Suspect]
     Active Substance: TREPROSTINIL
     Dosage: 0.034 ?G/KG, CONTINUING
     Route: 058
     Dates: start: 2019
  7. REMODULIN [Suspect]
     Active Substance: TREPROSTINIL
     Dosage: 0.0459 ?G/KG, CONTINUING
     Route: 058
     Dates: start: 2019
  8. REMODULIN [Suspect]
     Active Substance: TREPROSTINIL
     Dosage: 0.051 ?G/KG, CONTINUING
     Route: 058
     Dates: start: 2019
  9. REMODULIN [Suspect]
     Active Substance: TREPROSTINIL
     Dosage: UNK, CONTINUING (REDUCED; REDUCTION OF FLOW RATE)
     Route: 058
     Dates: start: 20200127
  10. REMODULIN [Suspect]
     Active Substance: TREPROSTINIL
     Dosage: 0.0459 ?G/KG, CONTINUING
     Route: 058
     Dates: start: 2020
  11. REMODULIN [Suspect]
     Active Substance: TREPROSTINIL
     Dosage: 0.041 ?G/KG, CONTINUING
     Route: 058
     Dates: start: 202002
  12. REMODULIN [Suspect]
     Active Substance: TREPROSTINIL
     Dosage: 0.0408 ?G/KG, CONTINUING
     Route: 058
     Dates: start: 2020, end: 202102
  13. REMODULIN [Suspect]
     Active Substance: TREPROSTINIL
     Indication: Pulmonary arterial hypertension
     Dosage: 0.041 ?G/KG, CONTINUING
     Route: 041
     Dates: start: 202102, end: 20210205
  14. ADCIRCA [Concomitant]
     Active Substance: TADALAFIL
     Indication: Pulmonary arterial hypertension
     Dosage: 40 MG/ DAY
     Route: 048
     Dates: start: 201604, end: 20210202
  15. OPSUMIT [Concomitant]
     Active Substance: MACITENTAN
     Indication: Pulmonary arterial hypertension
     Dosage: UNK
     Route: 048
     Dates: start: 201602, end: 20210202
  16. UPTRAVI [Concomitant]
     Active Substance: SELEXIPAG
     Indication: Pulmonary arterial hypertension
     Dosage: 3.2 MG/DAY
     Route: 048
     Dates: start: 201703, end: 20210202
  17. LOSARTAN POTASSIUM [Concomitant]
     Active Substance: LOSARTAN POTASSIUM
     Indication: Pulmonary arterial hypertension
     Dosage: UNK
     Route: 048
     Dates: end: 20210120
  18. FERROUS SULFATE [Concomitant]
     Active Substance: FERROUS SULFATE
     Indication: Product used for unknown indication
     Dosage: UNK
     Route: 048
     Dates: end: 20210202
  19. ALENDRONATE [Concomitant]
     Active Substance: ALENDRONATE SODIUM
     Indication: Product used for unknown indication
     Dosage: UNK
     Route: 048
     Dates: end: 20210121
  20. PRIMPERAN [Concomitant]
     Active Substance: METOCLOPRAMIDE HYDROCHLORIDE
     Indication: Prophylaxis
     Dosage: UNK, ASNECESSARY
     Route: 048
     Dates: start: 20190520
  21. RINDERON VG [Concomitant]
     Active Substance: BETAMETHASONE VALERATE\GENTAMICIN SULFATE
     Indication: Prophylaxis
     Dosage: UNK
     Route: 065
     Dates: start: 20190520
  22. RINDERON VG [Concomitant]
     Active Substance: BETAMETHASONE VALERATE\GENTAMICIN SULFATE
     Dosage: UNK
     Route: 065
     Dates: start: 20190528
  23. PREDONINE [Concomitant]
     Active Substance: PREDNISOLONE
     Indication: Product used for unknown indication
     Dosage: UNK
     Route: 048
     Dates: end: 20210202
  24. PREDNISOLONE [Concomitant]
     Active Substance: PREDNISOLONE
     Indication: Product used for unknown indication
     Dosage: UNK
     Route: 048
     Dates: end: 20210112
  25. URSODIOL [Concomitant]
     Active Substance: URSODIOL
     Indication: Product used for unknown indication
     Dosage: UNK
     Route: 048
     Dates: end: 20210119
  26. NEXIUM [Concomitant]
     Active Substance: ESOMEPRAZOLE MAGNESIUM
     Indication: Prophylaxis
     Dosage: UNK
     Route: 048
     Dates: end: 20210202
  27. FEXOFENADINE HYDROCHLORIDE [Concomitant]
     Active Substance: FEXOFENADINE HYDROCHLORIDE
     Indication: Product used for unknown indication
     Dosage: UNK
     Route: 048
     Dates: end: 20210119
  28. MONTELUKAST [Concomitant]
     Active Substance: MONTELUKAST SODIUM
     Indication: Product used for unknown indication
     Dosage: UNK
     Route: 048
     Dates: start: 20190529, end: 20190703
  29. DIETARY SUPPLEMENT\PROBIOTICS [Concomitant]
     Active Substance: DIETARY SUPPLEMENT\PROBIOTICS
     Indication: Prophylaxis
     Dosage: UNK
     Route: 048
     Dates: start: 20190625
  30. SPIRONOLACTONE [Concomitant]
     Active Substance: SPIRONOLACTONE
     Indication: Product used for unknown indication
     Dosage: UNK
     Route: 048
     Dates: start: 20190904, end: 20210202
  31. DIGOXIN [Concomitant]
     Active Substance: DIGOXIN
     Indication: Pulmonary arterial hypertension
     Dosage: UNK
     Route: 048
     Dates: start: 20200225, end: 20210202
  32. AZOSEMIDE [Concomitant]
     Active Substance: AZOSEMIDE
     Indication: Pulmonary arterial hypertension
     Dosage: UNK
     Route: 048
     Dates: start: 20191126, end: 20210202
  33. LOPERAMIDE HYDROCHLORIDE [Concomitant]
     Active Substance: LOPERAMIDE HYDROCHLORIDE
     Indication: Prophylaxis
     Dosage: AS NECESSARY
     Route: 048
     Dates: start: 20190723

REACTIONS (27)
  - Upper gastrointestinal haemorrhage [Fatal]
  - Sepsis [Fatal]
  - Septic shock [Fatal]
  - Blood pressure decreased [Fatal]
  - Pulmonary oedema [Not Recovered/Not Resolved]
  - Leg amputation [Unknown]
  - Scleroderma [Unknown]
  - Condition aggravated [Unknown]
  - Hepatic cirrhosis [Unknown]
  - Wound dehiscence [Recovering/Resolving]
  - Wound infection [Recovering/Resolving]
  - Wound secretion [Recovering/Resolving]
  - Cellulitis [Recovering/Resolving]
  - Injection site swelling [Recovering/Resolving]
  - Injection site pain [Recovering/Resolving]
  - Dermatitis allergic [Unknown]
  - Injection site erythema [Recovering/Resolving]
  - Injection site warmth [Unknown]
  - Somnolence [Recovering/Resolving]
  - Pyrexia [Unknown]
  - Injection site pruritus [Unknown]
  - Diarrhoea [Not Recovered/Not Resolved]
  - Injection site reaction [Recovering/Resolving]
  - Injection site haemorrhage [Recovered/Resolved]
  - Vomiting [Unknown]
  - Abdominal hernia [Not Recovered/Not Resolved]
  - Condition aggravated [Not Recovered/Not Resolved]

NARRATIVE: CASE EVENT DATE: 20190521
